FAERS Safety Report 7028817-8 (Version None)
Quarter: 2010Q4

REPORT INFORMATION
  Report Type: 
  Country: None (occurrence: None)
  Receive Date: 20101004
  Receipt Date: 20101004
  Transmission Date: 20110411
  Serious: No
  Sender: FDA-Public Use
  Company Number: None

PATIENT
  Age: 26 Year
  Sex: Female
  Weight: 104.3273 kg

DRUGS (1)
  1. BUDEPRION XL 150 MG TABLET TEVA USA [Suspect]
     Indication: DEPRESSION
     Dosage: 150 MG ONCE DAILY PO
     Route: 048
     Dates: start: 20100603, end: 20100610

REACTIONS (4)
  - AGGRESSION [None]
  - ANGER [None]
  - HEADACHE [None]
  - IRRITABILITY [None]
